FAERS Safety Report 23744343 (Version 3)
Quarter: 2024Q3

REPORT INFORMATION
  Report Type: Spontaneous
  Country: GB (occurrence: GB)
  Receive Date: 20240415
  Receipt Date: 20240904
  Transmission Date: 20241017
  Serious: Yes (Other)
  Sender: MYLAN
  Company Number: GB-MYLANLABS-2024M1022244

PATIENT
  Age: 65 Year
  Sex: Female

DRUGS (9)
  1. CLOZARIL [Suspect]
     Active Substance: CLOZAPINE
     Indication: Major depression
     Dosage: 100 MILLIGRAM, BID
     Route: 048
     Dates: start: 20240305
  2. LORAZEPAM [Concomitant]
     Active Substance: LORAZEPAM
     Indication: Anxiety
     Dosage: 2 MILLIGRAM, QD
     Route: 048
  3. MIRABEGRON [Concomitant]
     Active Substance: MIRABEGRON
     Indication: Urinary incontinence
     Dosage: 50 MILLIGRAM, QD
     Route: 048
     Dates: start: 20240412
  4. PROCYCLIDINE [Concomitant]
     Active Substance: PROCYCLIDINE
     Indication: Extrapyramidal disorder
     Dosage: 5 MILLIGRAM, TID
     Route: 048
     Dates: start: 20240410
  5. VALPROATE SODIUM [Concomitant]
     Active Substance: VALPROATE SODIUM
     Indication: Mood swings
     Dosage: 150 MILLIGRAM, QD
     Route: 048
     Dates: start: 20240307
  6. AMANTADINE [Concomitant]
     Active Substance: AMANTADINE
     Dosage: 200 MILLIGRAM, QD
     Route: 048
     Dates: start: 20240123
  7. SERTRALINE HYDROCHLORIDE [Concomitant]
     Active Substance: SERTRALINE HYDROCHLORIDE
     Indication: Depression
     Dosage: 200 MILLIGRAM, QD
     Route: 048
  8. METFORMIN [Concomitant]
     Active Substance: METFORMIN HYDROCHLORIDE
     Indication: Type 2 diabetes mellitus
     Dosage: 500 MILLIGRAM, QD
     Route: 048
  9. SENNA [Concomitant]
     Active Substance: SENNA LEAF\SENNOSIDES\SENNOSIDES A AND B
     Indication: Constipation
     Dosage: 15 MILLIGRAM, QD
     Route: 048
     Dates: start: 20240424

REACTIONS (5)
  - Thrombocytopenia [Unknown]
  - Troponin increased [Unknown]
  - C-reactive protein increased [Unknown]
  - Anaemia [Unknown]
  - Off label use [Unknown]

NARRATIVE: CASE EVENT DATE: 20240305
